FAERS Safety Report 9755545 (Version 1)
Quarter: 2013Q4

REPORT INFORMATION
  Report Type: Spontaneous
  Country: US (occurrence: US)
  Receive Date: 20131213
  Receipt Date: 20131213
  Transmission Date: 20140711
  Serious: No
  Sender: FDA-Public Use
  Company Number: US-GLAXOSMITHKLINE-A1019995A

PATIENT
  Age: 24 Year
  Sex: Female

DRUGS (1)
  1. NICODERM CQ CLEAR 21MG [Suspect]
     Indication: EX-TOBACCO USER
     Dates: start: 20130408, end: 20130412

REACTIONS (3)
  - Pain in extremity [Unknown]
  - Abdominal pain upper [Unknown]
  - Pain in extremity [Unknown]
